FAERS Safety Report 21223852 (Version 6)
Quarter: 2022Q3

REPORT INFORMATION
  Report Type: Spontaneous
  Country: US (occurrence: US)
  Receive Date: 20220817
  Receipt Date: 20220926
  Transmission Date: 20221027
  Serious: No
  Sender: FDA-Public Use
  Company Number: US-JNJFOC-20220828522

PATIENT
  Age: 41 Year
  Sex: Male

DRUGS (2)
  1. STELARA [Suspect]
     Active Substance: USTEKINUMAB
     Indication: Crohn^s disease
     Dosage: STRENGTH: 90.00 MG/ML
     Route: 058
     Dates: start: 202109
  2. STELARA [Suspect]
     Active Substance: USTEKINUMAB
     Route: 058
     Dates: start: 202111

REACTIONS (7)
  - Needle issue [Unknown]
  - Syringe issue [Unknown]
  - Product leakage [Unknown]
  - Accidental exposure to product [Unknown]
  - Product dose omission issue [Unknown]
  - Off label use [Unknown]
  - Cough [Unknown]

NARRATIVE: CASE EVENT DATE: 20211101
